FAERS Safety Report 22696802 (Version 2)
Quarter: 2023Q4

REPORT INFORMATION
  Report Type: Spontaneous
  Country: CN (occurrence: CN)
  Receive Date: 20230712
  Receipt Date: 20231006
  Transmission Date: 20240110
  Serious: Yes (Life-Threatening)
  Sender: FDA-Public Use
  Company Number: CN-BAYER-2023A095216

PATIENT
  Age: 71 Year
  Sex: Male
  Weight: 68 kg

DRUGS (2)
  1. ULTRAVIST [Suspect]
     Active Substance: IOPROMIDE
     Indication: Computerised tomogram limb
     Dosage: 100 ML, ONCE
     Route: 042
     Dates: start: 20230706, end: 20230706
  2. ULTRAVIST [Suspect]
     Active Substance: IOPROMIDE
     Indication: Peripheral arterial occlusive disease

REACTIONS (14)
  - Chest discomfort [Recovering/Resolving]
  - Dyspnoea [Recovering/Resolving]
  - Oxygen saturation decreased [Recovering/Resolving]
  - Pruritus [Recovering/Resolving]
  - Asthma [Recovering/Resolving]
  - Flushing [Recovering/Resolving]
  - Cyanosis [Recovering/Resolving]
  - Hyperhidrosis [Recovering/Resolving]
  - Rash [Recovering/Resolving]
  - Heart rate increased [None]
  - Breath sounds abnormal [Recovering/Resolving]
  - Blood pressure increased [None]
  - Respiratory rate increased [None]
  - Orthopnoea [Recovering/Resolving]

NARRATIVE: CASE EVENT DATE: 20230706
